FAERS Safety Report 9230605 (Version 1)
Quarter: 2013Q2

REPORT INFORMATION
  Report Type: Spontaneous
  Country: US (occurrence: US)
  Receive Date: 20130415
  Receipt Date: 20130415
  Transmission Date: 20140414
  Serious: No
  Sender: FDA-Public Use
  Company Number: US-BAYER-2013-046024

PATIENT
  Age: 16 Year
  Sex: Female
  Weight: 58.96 kg

DRUGS (2)
  1. ALEVE CAPLET [Suspect]
     Indication: DYSMENORRHOEA
     Dosage: 3 DF, ONCE
     Route: 048
     Dates: start: 20130404
  2. ALEVE CAPLET [Suspect]
     Indication: DYSMENORRHOEA
     Dosage: 2 DF, BID
     Route: 048
     Dates: start: 20130404

REACTIONS (2)
  - Inappropriate schedule of drug administration [None]
  - Incorrect dose administered [None]
